FAERS Safety Report 16367136 (Version 1)
Quarter: 2019Q2

REPORT INFORMATION
  Report Type: Spontaneous
  Country: US (occurrence: US)
  Receive Date: 20190422
  Receipt Date: 20190422
  Transmission Date: 20190711
  Serious: Yes (Hospitalization)
  Sender: FDA-Public Use
  Company Number: None

PATIENT
  Age: 76 Year
  Sex: Male

DRUGS (1)
  1. LENALIDOMIDE [Suspect]
     Active Substance: LENALIDOMIDE
     Indication: PLASMA CELL MYELOMA
     Route: 048
     Dates: start: 20190228, end: 20190319

REACTIONS (8)
  - Neoplasm malignant [None]
  - Pulmonary mass [None]
  - Malaise [None]
  - Decreased appetite [None]
  - Pyrexia [None]
  - Fatigue [None]
  - Disease progression [None]
  - Cough [None]

NARRATIVE: CASE EVENT DATE: 20190319
